FAERS Safety Report 6528336-9 (Version None)
Quarter: 2010Q1

REPORT INFORMATION
  Report Type: 
  Country: None (occurrence: None)
  Receive Date: 20100106
  Receipt Date: 20091228
  Transmission Date: 20100710
  Serious: Yes (Other)
  Sender: FDA-Public Use
  Company Number: PHHY2009ZA34594

PATIENT
  Age: 70 Year
  Sex: Female

DRUGS (2)
  1. ZOMETA [Suspect]
     Indication: BREAST CANCER
     Dosage: ONCE EVERY 6 MONTHS
     Dates: start: 20030101, end: 20070101
  2. ZOMETA [Suspect]
     Dosage: UNK
     Dates: start: 20070101

REACTIONS (1)
  - LOWER LIMB FRACTURE [None]
